FAERS Safety Report 25505005 (Version 1)
Quarter: 2025Q3

REPORT INFORMATION
  Report Type: Spontaneous
  Country: US (occurrence: None)
  Receive Date: 20250702
  Receipt Date: 20250702
  Transmission Date: 20251021
  Serious: Yes (Other)
  Sender: FDA-CTU
  Company Number: None

PATIENT
  Age: 55 Year
  Sex: Female

DRUGS (1)
  1. TRETINOIN [Suspect]
     Active Substance: TRETINOIN
     Dosage: FREQUENCY : TWICE A DAY;?

REACTIONS (8)
  - Tinnitus [None]
  - Chest pain [None]
  - Palpitations [None]
  - Peripheral swelling [None]
  - Joint swelling [None]
  - Hypoaesthesia [None]
  - Abdominal mass [None]
  - Paraesthesia [None]
